FAERS Safety Report 8458291-6 (Version None)
Quarter: 2012Q2

REPORT INFORMATION
  Report Type: 
  Country: None (occurrence: None)
  Receive Date: 20120622
  Receipt Date: 20120618
  Transmission Date: 20120825
  Serious: No
  Sender: FDA-Public Use
  Company Number: US-PFIZER INC-2012147745

PATIENT
  Sex: Female
  Weight: 72.562 kg

DRUGS (2)
  1. LIPITOR [Suspect]
     Indication: BLOOD CHOLESTEROL INCREASED
     Dosage: 20 MG, 1X/DAY
     Route: 048
  2. METFORMIN [Concomitant]
     Dosage: UNK

REACTIONS (2)
  - PAIN [None]
  - OROPHARYNGEAL PAIN [None]
